FAERS Safety Report 7868726-5 (Version None)
Quarter: 2011Q4

REPORT INFORMATION
  Report Type: 
  Country: None (occurrence: None)
  Receive Date: 20111028
  Receipt Date: 20101220
  Transmission Date: 20120403
  Serious: No
  Sender: FDA-Public Use
  Company Number: US-AMGEN-USASP2010010159

PATIENT
  Age: 53 Year
  Sex: Female

DRUGS (2)
  1. ENBREL [Suspect]
     Indication: RHEUMATOID ARTHRITIS
     Dosage: 50 MG, QWK
     Dates: start: 20101208
  2. METHOTREXATE (TREXALL) [Concomitant]
     Dosage: 1 MG, QWK
     Dates: start: 20100101

REACTIONS (2)
  - INJECTION SITE HAEMATOMA [None]
  - RHEUMATOID ARTHRITIS [None]
